FAERS Safety Report 7197473-0 (Version None)
Quarter: 2010Q4

REPORT INFORMATION
  Report Type: 
  Country: None (occurrence: None)
  Receive Date: 20101227
  Receipt Date: 20101215
  Transmission Date: 20110411
  Serious: No
  Sender: FDA-Public Use
  Company Number: FR-JNJFOC-20101206842

PATIENT
  Age: 74 Year
  Sex: Female

DRUGS (2)
  1. DURAGESIC-100 [Suspect]
     Indication: CANCER PAIN
  2. FENTANYL CITRATE [Concomitant]
     Indication: CANCER PAIN
     Route: 002

REACTIONS (1)
  - DRUG PRESCRIBING ERROR [None]
